FAERS Safety Report 9065760 (Version 1)
Quarter: 2013Q1

REPORT INFORMATION
  Report Type: Report from Study
  Country: US (occurrence: US)
  Receive Date: 20130131
  Receipt Date: 20130131
  Transmission Date: 20140127
  Serious: No
  Sender: FDA-Public Use
  Company Number: US-ABBOTT-12P-163-1017484-00

PATIENT
  Age: 60 Year
  Sex: Female

DRUGS (7)
  1. HUMIRA [Suspect]
     Indication: GRANULOMA ANNULARE
     Dates: start: 20121116, end: 20121116
  2. HUMIRA [Suspect]
     Dates: start: 20121123
  3. LEVOTHYROXINE [Concomitant]
     Indication: HYPOTHYROIDISM
  4. SERTRALINE [Concomitant]
     Indication: DEPRESSION
  5. ESTROGEN [Concomitant]
     Indication: MENOPAUSAL SYMPTOMS
  6. PROGESTERONE [Concomitant]
     Indication: PRODUCT USED FOR UNKNOWN INDICATION
     Dosage: DAILY
  7. CALCIUM [Concomitant]
     Indication: PRODUCT USED FOR UNKNOWN INDICATION
     Dosage: 1200MG DAILY

REACTIONS (3)
  - Injection site pain [Recovered/Resolved]
  - Injection site pain [Recovered/Resolved]
  - Injection site haemorrhage [Recovered/Resolved]
